FAERS Safety Report 5041036-X (Version None)
Quarter: 2006Q2

REPORT INFORMATION
  Report Type: 
  Country: None (occurrence: None)
  Receive Date: 20060630
  Receipt Date: 20060630
  Transmission Date: 20061013
  Serious: No
  Sender: FDA-Public Use
  Company Number: None

PATIENT
  Sex: Male
  Weight: 97.0698 kg

DRUGS (10)
  1. ROSIGLITAZONE [Suspect]
     Indication: DIABETES MELLITUS
     Dosage: 4 MG Q DAY PO
     Route: 048
     Dates: start: 20030428, end: 20060410
  2. AMOXICILLIN [Concomitant]
  3. EPOETIN ALFA, RECOMB [Concomitant]
  4. FELODIPINE [Concomitant]
  5. FUROSEMIDE [Concomitant]
  6. GEMFIBROZIL [Concomitant]
  7. GLYBURIDE [Concomitant]
  8. LISINOPRIL [Concomitant]
  9. METFORMIN HYDROCHLORIDE [Concomitant]
  10. METOPROLOL TARTRATE [Concomitant]

REACTIONS (3)
  - ANAEMIA [None]
  - CARDIAC FAILURE CONGESTIVE [None]
  - WEIGHT DECREASED [None]
